FAERS Safety Report 21461686 (Version 1)
Quarter: 2022Q4

REPORT INFORMATION
  Report Type: Spontaneous
  Country: US (occurrence: None)
  Receive Date: 20221015
  Receipt Date: 20221015
  Transmission Date: 20230113
  Serious: Yes (Hospitalization, Other)
  Sender: FDA-Public Use
  Company Number: US-Accord-281581

PATIENT
  Age: 55 Year
  Sex: Male

DRUGS (2)
  1. METHOTREXATE [Suspect]
     Active Substance: METHOTREXATE
     Indication: Pustular psoriasis
  2. INFLIXIMAB [Suspect]
     Active Substance: INFLIXIMAB
     Indication: Pustular psoriasis
     Dosage: INFUSION, ON 700 MG INFLIXIMAB EVERY 6 WEEKS (8.64 MG/KG)

REACTIONS (2)
  - Meningitis listeria [Recovered/Resolved]
  - Bacteraemia [Recovered/Resolved]
